FAERS Safety Report 16198318 (Version 1)
Quarter: 2019Q2

REPORT INFORMATION
  Report Type: Spontaneous
  Country: JP (occurrence: JP)
  Receive Date: 20190415
  Receipt Date: 20190415
  Transmission Date: 20190711
  Serious: Yes (Other)
  Sender: FDA-Public Use
  Company Number: JP-PFIZER INC-2019147684

PATIENT
  Age: 16 Year
  Sex: Female

DRUGS (3)
  1. PREMARIN [Suspect]
     Active Substance: ESTROGENS, CONJUGATED
     Indication: OVARIAN FAILURE
     Dosage: TWO TABLETS
     Route: 048
  2. LUTORAL [Concomitant]
     Active Substance: CHLORMADINONE ACETATE
     Dosage: 1 TABLET TWICE DAILY/ IN THE MORNING AND EVENING
  3. PREMARIN [Suspect]
     Active Substance: ESTROGENS, CONJUGATED
     Indication: AMENORRHOEA
     Dosage: TWO TABLETS A DAY
     Route: 048

REACTIONS (4)
  - Vasodilatation [Unknown]
  - Withdrawal bleed [Unknown]
  - Purpura [Unknown]
  - Thrombosis [Unknown]
